FAERS Safety Report 9514882 (Version 1)
Quarter: 2013Q1

REPORT INFORMATION
  Report Type: Spontaneous
  Country: US (occurrence: None)
  Receive Date: 20130305
  Receipt Date: 20130305
  Transmission Date: 20140127
  Serious: Yes (Other)
  Sender: FDA-Public Use
  Company Number: 163-21880-12112751

PATIENT
  Age: 60 Year
  Sex: Male
  Weight: 134.27 kg

DRUGS (5)
  1. REVLIMID [Suspect]
     Indication: PLASMA CELL MYELOMA
     Route: 048
     Dates: start: 200812
  2. ASA (ACETYSALICYLIC ACID) (UNKNOWN) [Concomitant]
  3. COREG (CARVEDILOL) (UNKNOWN) [Concomitant]
  4. LISINOPRIL (LISINOPRIL) (UNKNOWN) [Concomitant]
  5. AREDIA (PAMIDRONATE DISODIUM) (UNKNOWN) [Concomitant]

REACTIONS (1)
  - Renal failure acute [None]
